FAERS Safety Report 6168462-X (Version None)
Quarter: 2009Q2

REPORT INFORMATION
  Report Type: 
  Country: None (occurrence: None)
  Receive Date: 20090423
  Receipt Date: 20090420
  Transmission Date: 20091009
  Serious: Yes (Hospitalization, Other)
  Sender: FDA-Public Use
  Company Number: JHP200900121

PATIENT
  Age: 68 Year
  Sex: Female

DRUGS (2)
  1. EPINEPHRINE [Suspect]
     Indication: SCLEROTHERAPY
     Dosage: HYPERTONIC-SALINE-EPINEPHRINE SOLUTION-ENDOSCOPIC INJECTION, OTHER
     Route: 050
  2. SODIUM CHLORIDE [Suspect]
     Indication: SCLEROTHERAPY
     Dosage: HYPERTONIC SALINE-EPINEPHRINE SOLUTION-ENDOSCOPIC INJECTION, OTHER
     Route: 050

REACTIONS (5)
  - ANAEMIA [None]
  - CONDITION AGGRAVATED [None]
  - SPLENIC ABSCESS [None]
  - SPLENIC INFARCTION [None]
  - SPLENIC NECROSIS [None]
